FAERS Safety Report 15018534 (Version 4)
Quarter: 2018Q3

REPORT INFORMATION
  Report Type: Spontaneous
  Country: US (occurrence: US)
  Receive Date: 20180615
  Receipt Date: 20180703
  Transmission Date: 20181010
  Serious: Yes (Life-Threatening, Hospitalization)
  Sender: FDA-Public Use
  Company Number: US-ACTELION-A-US2018-173611

PATIENT
  Age: 9 Month
  Sex: Male

DRUGS (8)
  1. TRACLEER [Suspect]
     Active Substance: BOSENTAN
     Dosage: 11.8 MG, BID
     Route: 048
     Dates: start: 20180331
  2. CHLORTHIAZIDE [Suspect]
     Active Substance: CHLOROTHIAZIDE
     Indication: PRODUCT USED FOR UNKNOWN INDICATION
     Dosage: 35 MG, BID
     Route: 065
     Dates: start: 20180521
  3. ADCIRCA [Suspect]
     Active Substance: TADALAFIL
     Dosage: 14 MG, QD
     Route: 065
  4. ALBUTEROL. [Concomitant]
     Active Substance: ALBUTEROL
     Dosage: 40 MCG, Q4HRS
     Route: 055
     Dates: start: 20180521
  5. FLOVENT [Concomitant]
     Active Substance: FLUTICASONE PROPIONATE
     Dosage: 44 MCG, UNK
  6. TRACLEER [Suspect]
     Active Substance: BOSENTAN
     Indication: PULMONARY ARTERIAL HYPERTENSION
     Dosage: 7 MG, BID
     Route: 048
     Dates: start: 20180521
  7. TRACLEER [Suspect]
     Active Substance: BOSENTAN
     Dosage: 6 MG, BID
     Route: 048
     Dates: start: 20180521
  8. ADCIRCA [Suspect]
     Active Substance: TADALAFIL
     Indication: PRODUCT USED FOR UNKNOWN INDICATION
     Dosage: 12 MG, QD
     Route: 065
     Dates: start: 20180521

REACTIONS (6)
  - Bronchitis [Unknown]
  - Drug administered to patient of inappropriate age [Unknown]
  - Upper respiratory tract infection [Unknown]
  - Enterovirus infection [Unknown]
  - Rhinovirus infection [Unknown]
  - No adverse event [Unknown]
